FAERS Safety Report 9469691 (Version 4)
Quarter: 2013Q4

REPORT INFORMATION
  Report Type: Report from Study
  Country: LT (occurrence: LT)
  Receive Date: 20130822
  Receipt Date: 20131128
  Transmission Date: 20140711
  Serious: Yes (Hospitalization)
  Sender: FDA-Public Use
  Company Number: LT-JNJFOC-20130810102

PATIENT
  Age: 19 Year
  Sex: Female
  Weight: 55.1 kg

DRUGS (9)
  1. GOLIMUMAB [Suspect]
     Indication: JUVENILE IDIOPATHIC ARTHRITIS
     Route: 058
     Dates: start: 20120503
  2. GOLIMUMAB [Suspect]
     Indication: JUVENILE IDIOPATHIC ARTHRITIS
     Route: 058
     Dates: start: 20111215
  3. GOLIMUMAB [Suspect]
     Indication: JUVENILE IDIOPATHIC ARTHRITIS
     Dosage: WEEK 96
     Route: 058
  4. GOLIMUMAB [Suspect]
     Indication: JUVENILE IDIOPATHIC ARTHRITIS
     Dosage: WEEK 100
     Route: 058
     Dates: start: 20131114
  5. GOLIMUMAB [Suspect]
     Indication: JUVENILE IDIOPATHIC ARTHRITIS
     Route: 058
     Dates: start: 20130725
  6. METHOTREXATE [Suspect]
     Indication: JUVENILE IDIOPATHIC ARTHRITIS
     Route: 048
     Dates: start: 20110219
  7. AMOXICILLIN [Concomitant]
     Indication: ACUTE TONSILLITIS
     Route: 048
     Dates: start: 20120707, end: 20120712
  8. ACIDUM FOLICUM [Concomitant]
     Indication: PROPHYLAXIS
     Route: 048
     Dates: start: 20110219
  9. NIMESULIDE [Concomitant]
     Indication: PYREXIA
     Route: 048
     Dates: start: 20111109, end: 20111110

REACTIONS (1)
  - Peritonsillar abscess [Recovered/Resolved]
